FAERS Safety Report 6803068-8 (Version None)
Quarter: 2010Q2

REPORT INFORMATION
  Report Type: 
  Country: None (occurrence: None)
  Receive Date: 20100628
  Receipt Date: 20100624
  Transmission Date: 20101027
  Serious: Yes (Death, Hospitalization)
  Sender: FDA-Public Use
  Company Number: US-SANOFI-AVENTIS-2010SA032196

PATIENT
  Age: 68 Year
  Sex: Male
  Weight: 85 kg

DRUGS (9)
  1. DOCETAXEL [Suspect]
     Indication: PROSTATE CANCER
     Route: 041
     Dates: start: 20100409, end: 20100409
  2. DOCETAXEL [Suspect]
     Route: 041
     Dates: start: 20100520, end: 20100520
  3. BLINDED THERAPY [Suspect]
     Indication: PROSTATE CANCER
     Route: 048
     Dates: start: 20100409, end: 20100524
  4. PREDNISONE [Suspect]
     Indication: PROSTATE CANCER
     Route: 048
     Dates: start: 20100409, end: 20100524
  5. DEXAMETHASONE [Suspect]
     Indication: PREMEDICATION
     Dosage: GIVEN ON DAYS 0, DAY 1 AND DAY 2 OF EACH CYCLE
     Route: 048
     Dates: end: 20100521
  6. ALDACTONE [Concomitant]
  7. ASPIRIN [Concomitant]
  8. ROXANOL [Concomitant]
  9. FUROSEMIDE [Concomitant]

REACTIONS (10)
  - ACUTE RESPIRATORY DISTRESS SYNDROME [None]
  - CARDIAC FAILURE CONGESTIVE [None]
  - CHEST PAIN [None]
  - FUNGAL INFECTION [None]
  - HYPONATRAEMIA [None]
  - MUSCULAR WEAKNESS [None]
  - NEUTROPENIA [None]
  - PLATELET DISORDER [None]
  - PNEUMONITIS [None]
  - STOMATITIS [None]
